FAERS Safety Report 25284050 (Version 1)
Quarter: 2025Q2

REPORT INFORMATION
  Report Type: Spontaneous
  Country: ES (occurrence: ES)
  Receive Date: 20250508
  Receipt Date: 20250508
  Transmission Date: 20250716
  Serious: Yes (Disabling)
  Sender: PFIZER
  Company Number: ES-KERNPHARMA-202501285

PATIENT
  Age: 76 Year
  Sex: Female

DRUGS (5)
  1. METHOTREXATE SODIUM [Suspect]
     Active Substance: METHOTREXATE SODIUM
     Indication: Peripheral ischaemia
  2. ALPROSTADIL [Suspect]
     Active Substance: ALPROSTADIL
     Indication: Peripheral ischaemia
  3. PREDNISONE [Suspect]
     Active Substance: PREDNISONE
     Indication: Peripheral ischaemia
  4. TOCILIZUMAB [Suspect]
     Active Substance: TOCILIZUMAB
     Indication: Peripheral ischaemia
  5. ASPIRIN [Suspect]
     Active Substance: ASPIRIN
     Indication: Peripheral ischaemia
     Dosage: 100 MG, DAILY

REACTIONS (3)
  - Arm amputation [Not Recovered/Not Resolved]
  - Drug ineffective for unapproved indication [Unknown]
  - Off label use [Unknown]
